FAERS Safety Report 17137840 (Version 2)
Quarter: 2020Q1

REPORT INFORMATION
  Report Type: Report from Study
  Country: None (occurrence: US)
  Receive Date: 20191211
  Receipt Date: 20200102
  Transmission Date: 20200409
  Serious: Yes (Death)
  Sender: FDA-Public Use
  Company Number: US-ABBVIE-19P-163-3186554-00

PATIENT
  Age: 64 Year
  Sex: Male

DRUGS (1)
  1. IMBRUVICA [Suspect]
     Active Substance: IBRUTINIB
     Indication: CHRONIC LYMPHOCYTIC LEUKAEMIA
     Route: 048
     Dates: start: 201904, end: 201911

REACTIONS (3)
  - Gastritis [Not Recovered/Not Resolved]
  - Decreased appetite [Unknown]
  - Condition aggravated [Fatal]

NARRATIVE: CASE EVENT DATE: 2019
